FAERS Safety Report 12716234 (Version 1)
Quarter: 2016Q3

REPORT INFORMATION
  Report Type: Spontaneous
  Country: VE (occurrence: VE)
  Receive Date: 20160906
  Receipt Date: 20160906
  Transmission Date: 20161109
  Serious: Yes (Other)
  Sender: FDA-Public Use
  Company Number: PHHY2016VE121140

PATIENT
  Sex: Female
  Weight: 7 kg

DRUGS (2)
  1. TEGRETOL [Suspect]
     Active Substance: CARBAMAZEPINE
     Indication: SEIZURE
     Route: 048
  2. VIPRIN [Concomitant]
     Indication: HYPOVITAMINOSIS
     Dosage: 0.5 DF, QD
     Route: 065

REACTIONS (1)
  - Seizure [Unknown]
